FAERS Safety Report 6871958-6 (Version None)
Quarter: 2010Q3

REPORT INFORMATION
  Report Type: 
  Country: None (occurrence: None)
  Receive Date: 20100723
  Receipt Date: 20100706
  Transmission Date: 20110219
  Serious: No
  Sender: FDA-Public Use
  Company Number: US-ROXANE LABORATORIES, INC.-2010-RO-00698RO

PATIENT
  Age: 11 Year
  Sex: Male

DRUGS (5)
  1. PREDNISONE [Suspect]
     Indication: ASTHMA
     Route: 048
  2. PREDNISONE [Suspect]
     Route: 048
  3. PREDNISONE [Suspect]
     Dosage: 50 MG
     Route: 048
  4. PREDNISONE [Suspect]
  5. PREDNISONE [Suspect]
     Dates: start: 20091001, end: 20100301

REACTIONS (5)
  - PRODUCT SOLUBILITY ABNORMAL [None]
  - PRODUCT TASTE ABNORMAL [None]
  - RESPIRATORY SYNCYTIAL VIRUS INFECTION [None]
  - THROAT IRRITATION [None]
  - VOMITING [None]
